FAERS Safety Report 4893020-4 (Version None)
Quarter: 2005Q4

REPORT INFORMATION
  Report Type: 
  Country: None (occurrence: None)
  Receive Date: 20051223
  Receipt Date: 20050909
  Transmission Date: 20060501
  Serious: No
  Sender: FDA-Public Use
  Company Number: 217666

PATIENT
  Age: 55 Year
  Sex: Female

DRUGS (4)
  1. AVASTIN [Suspect]
     Indication: COLON CANCER
     Dosage: Q3W
     Dates: start: 20050812
  2. CAPECITABINE(CAPECITABINE) [Suspect]
     Indication: COLON CANCER
     Dates: start: 20050717
  3. LISINOPRIL [Concomitant]
  4. COUMADIN [Concomitant]

REACTIONS (1)
  - FAECES DISCOLOURED [None]
